FAERS Safety Report 9803204 (Version 1)
Quarter: 2014Q1

REPORT INFORMATION
  Report Type: Spontaneous
  Country: US (occurrence: US)
  Receive Date: 20140108
  Receipt Date: 20140108
  Transmission Date: 20141002
  Serious: No
  Sender: FDA-Public Use
  Company Number: US-PFIZER INC-2014002492

PATIENT
  Sex: Female

DRUGS (1)
  1. PROTONIX [Suspect]
     Dosage: UNK

REACTIONS (6)
  - Nausea [Unknown]
  - Blood magnesium decreased [Unknown]
  - Nervousness [Unknown]
  - Confusional state [Unknown]
  - Muscular weakness [Unknown]
  - Tremor [Unknown]
